FAERS Safety Report 8994855 (Version 1)
Quarter: 2012Q4

REPORT INFORMATION
  Report Type: Spontaneous
  Country: TN (occurrence: None)
  Receive Date: 20121221
  Receipt Date: 20121221
  Transmission Date: 20130627
  Serious: Yes (Death, Other)
  Sender: FDA-Public Use
  Company Number: 2012P1067796

PATIENT
  Age: 49 Year
  Sex: Male

DRUGS (1)
  1. PHENOBARBITAL [Suspect]
     Indication: METASTASES TO BRAIN

REACTIONS (3)
  - Odynophagia [None]
  - Face oedema [None]
  - Drug reaction with eosinophilia and systemic symptoms [None]
